FAERS Safety Report 13738506 (Version 2)
Quarter: 2018Q2

REPORT INFORMATION
  Report Type: Spontaneous
  Country: US (occurrence: US)
  Receive Date: 20170710
  Receipt Date: 20180627
  Transmission Date: 20180711
  Serious: No
  Sender: FDA-Public Use
  Company Number: US-SAOL THERAPEUTICS-2016SAO01229

PATIENT
  Age: 49 Year
  Sex: Female
  Weight: 85.26 kg

DRUGS (3)
  1. COMPOUNDED BACLOFEN [Suspect]
     Active Substance: BACLOFEN
     Indication: SPINAL CORD INJURY
  2. MORPHINE [Suspect]
     Active Substance: MORPHINE
     Route: 037
  3. COMPOUNDED BACLOFEN [Suspect]
     Active Substance: BACLOFEN
     Indication: MUSCLE SPASTICITY
     Dosage: 123 ?G, \DAY
     Route: 037
     Dates: start: 20160826

REACTIONS (5)
  - Arthropathy [Unknown]
  - Pain [Unknown]
  - Arthralgia [Unknown]
  - Device failure [Unknown]
  - Malaise [Unknown]

NARRATIVE: CASE EVENT DATE: 2016
